FAERS Safety Report 15333355 (Version 1)
Quarter: 2018Q3

REPORT INFORMATION
  Report Type: Report from Study
  Country: HU (occurrence: HU)
  Receive Date: 20180830
  Receipt Date: 20180830
  Transmission Date: 20181010
  Serious: Yes (Other)
  Sender: FDA-Public Use
  Company Number: HU-ROCHE-2174038

PATIENT

DRUGS (2)
  1. VEMURAFENIB. [Suspect]
     Active Substance: VEMURAFENIB
     Indication: METASTATIC MALIGNANT MELANOMA
     Route: 048
  2. COBIMETINIB. [Suspect]
     Active Substance: COBIMETINIB
     Indication: METASTATIC MALIGNANT MELANOMA
     Route: 048

REACTIONS (14)
  - Alopecia [Unknown]
  - Blood creatine phosphokinase increased [Unknown]
  - Drug reaction with eosinophilia and systemic symptoms [Recovered/Resolved]
  - Neutropenia [Unknown]
  - Retinal infarction [Unknown]
  - Hyperkeratosis [Unknown]
  - Hair texture abnormal [Unknown]
  - Ejection fraction decreased [Unknown]
  - Photosensitivity reaction [Unknown]
  - Electrocardiogram QT prolonged [Unknown]
  - Rash maculo-papular [Unknown]
  - Cardiotoxicity [Unknown]
  - Nausea [Unknown]
  - Vomiting [Unknown]
